FAERS Safety Report 20354194 (Version 1)
Quarter: 2022Q1

REPORT INFORMATION
  Report Type: Spontaneous
  Country: BR (occurrence: BR)
  Receive Date: 20220120
  Receipt Date: 20220120
  Transmission Date: 20220423
  Serious: Yes (Other)
  Sender: FDA-Public Use
  Company Number: BR-AMGEN-BRASP2022006137

PATIENT

DRUGS (1)
  1. BLINCYTO [Suspect]
     Active Substance: BLINATUMOMAB
     Indication: Minimal residual disease
     Dosage: 15 MICROGRAM/SQ. METER
     Route: 065

REACTIONS (3)
  - Refractory cancer [Unknown]
  - Pyrexia [Unknown]
  - White blood cell count increased [Unknown]
